FAERS Safety Report 22120539 (Version 2)
Quarter: 2023Q2

REPORT INFORMATION
  Report Type: Spontaneous
  Country: CH (occurrence: CH)
  Receive Date: 20230321
  Receipt Date: 20230525
  Transmission Date: 20230722
  Serious: Yes (Other)
  Sender: FDA-Public Use
  Company Number: CH-002147023-NVSC2023CH058586

PATIENT
  Age: 33 Year
  Sex: Female

DRUGS (1)
  1. ERENUMAB [Suspect]
     Active Substance: ERENUMAB
     Indication: Product used for unknown indication
     Dosage: UNK
     Route: 065

REACTIONS (3)
  - Gestational trophoblastic detachment [Unknown]
  - Abortion missed [Unknown]
  - Maternal exposure before pregnancy [Unknown]
